FAERS Safety Report 13966757 (Version 1)
Quarter: 2017Q3

REPORT INFORMATION
  Report Type: Spontaneous
  Country: US (occurrence: US)
  Receive Date: 20170914
  Receipt Date: 20170914
  Transmission Date: 20171128
  Serious: Yes (Death)
  Sender: FDA-Public Use
  Company Number: US-CELGENEUS-USA-20170900178

PATIENT
  Age: 88 Year
  Sex: Male

DRUGS (1)
  1. REVLIMID [Suspect]
     Active Substance: LENALIDOMIDE
     Indication: FOLLICLE CENTRE LYMPHOMA, FOLLICULAR GRADE I, II, III
     Dosage: 10 MILLIGRAM
     Route: 048
     Dates: start: 20170605

REACTIONS (1)
  - Death [Fatal]

NARRATIVE: CASE EVENT DATE: 20170828
